FAERS Safety Report 16951944 (Version 2)
Quarter: 2019Q4

REPORT INFORMATION
  Report Type: Spontaneous
  Country: US (occurrence: US)
  Receive Date: 20191023
  Receipt Date: 20191124
  Transmission Date: 20200122
  Serious: No
  Sender: FDA-Public Use
  Company Number: US-009507513-1910USA013746

PATIENT
  Sex: Female

DRUGS (1)
  1. NEXPLANON [Suspect]
     Active Substance: ETONOGESTREL
     Dosage: 68 MG IMPLANT, YEARLY
     Route: 059
     Dates: start: 201709, end: 20180831

REACTIONS (2)
  - Adverse event [Unknown]
  - Inappropriate schedule of product administration [Unknown]
